FAERS Safety Report 8764052 (Version 1)
Quarter: 2012Q4

REPORT INFORMATION
  Report Type: 
  Country: FR (occurrence: FR)
  Receive Date: 20120830
  Receipt Date: 20120830
  Transmission Date: 20130627
  Serious: Yes (Other)
  Sender: FDA-Public Use
  Company Number: FR-PFIZER INC-2012213904

PATIENT

DRUGS (4)
  1. IBUPROFEN [Suspect]
     Indication: PRODUCT USED FOR UNKNOWN INDICATION
     Route: 065
  2. ABCIXIMAB [Suspect]
     Indication: PRODUCT USED FOR UNKNOWN INDICATION
     Route: 065
  3. METHYLPHENIDATE [Suspect]
     Indication: PRODUCT USED FOR UNKNOWN INDICATION
     Route: 065
  4. TRAMADOL [Suspect]
     Indication: PRODUCT USED FOR UNKNOWN INDICATION
     Route: 065

REACTIONS (7)
  - Autoimmune thrombocytopenia [Unknown]
  - Gastrointestinal haemorrhage [Unknown]
  - Haemorrhage [Unknown]
  - Skin haemorrhage [Unknown]
  - Mouth haemorrhage [Unknown]
  - Menorrhagia [Unknown]
  - Epistaxis [Unknown]
